FAERS Safety Report 8490901-X (Version None)
Quarter: 2012Q2

REPORT INFORMATION
  Report Type: 
  Country: None (occurrence: None)
  Receive Date: 20120629
  Receipt Date: 20120629
  Transmission Date: 20120825
  Serious: Yes (Other)
  Sender: FDA-Public Use
  Company Number: None

PATIENT
  Age: 43 Year
  Sex: Female
  Weight: 73.4827 kg

DRUGS (2)
  1. SINGULAIR [Suspect]
     Indication: MULTIPLE ALLERGIES
     Dosage: 1 PILL DAILY
     Dates: start: 20100201, end: 20101031
  2. SINGULAIR [Suspect]
     Indication: ASTHMA
     Dosage: 1 PILL DAILY
     Dates: start: 20100201, end: 20101031

REACTIONS (4)
  - HALLUCINATION [None]
  - NIGHTMARE [None]
  - AGORAPHOBIA [None]
  - DEPRESSION [None]
